FAERS Safety Report 10274830 (Version 1)
Quarter: 2014Q3

REPORT INFORMATION
  Report Type: Spontaneous
  Country: DE (occurrence: DE)
  Receive Date: 20140702
  Receipt Date: 20140702
  Transmission Date: 20150326
  Serious: Yes (Congenital Anomaly, Other)
  Sender: FDA-Public Use
  Company Number: DE-MYLANLABS-2014S1015024

PATIENT
  Age: 0 Year
  Sex: Female
  Weight: 4.05 kg

DRUGS (6)
  1. PENTASA [Suspect]
     Active Substance: MESALAMINE
     Indication: COLITIS ULCERATIVE
     Dosage: 2000 [MG/D ]
     Route: 064
     Dates: start: 20130204, end: 20131112
  2. DERMATOP [Concomitant]
     Active Substance: PREDNICARBATE
     Indication: PRURITUS
     Dosage: WHOLE BODY
     Route: 064
  3. AZATHIOPRINE. [Suspect]
     Active Substance: AZATHIOPRINE
     Indication: COLITIS ULCERATIVE
     Dosage: 150 [MG/D ]
     Route: 064
  4. FOLIC [Concomitant]
     Indication: PROPHYLAXIS OF NEURAL TUBE DEFECT
     Dosage: 4 [MG/D (BIS 0.4 ) ]
     Route: 064
     Dates: start: 20130204, end: 20131112
  5. CETIRIZINE [Concomitant]
     Active Substance: CETIRIZINE HYDROCHLORIDE
     Indication: PRURITUS
     Route: 064
  6. L-THYROXIN [Concomitant]
     Active Substance: LEVOTHYROXINE SODIUM
     Indication: HYPOTHYROIDISM
     Dosage: 75 [?G/D ]
     Route: 064
     Dates: start: 20130204, end: 20131112

REACTIONS (2)
  - Congenital large intestinal atresia [Recovered/Resolved with Sequelae]
  - Foetal exposure during pregnancy [Recovered/Resolved with Sequelae]
